FAERS Safety Report 6179576-2 (Version None)
Quarter: 2009Q2

REPORT INFORMATION
  Report Type: 
  Country: None (occurrence: None)
  Receive Date: 20090505
  Receipt Date: 20090504
  Transmission Date: 20091009
  Serious: Yes (Hospitalization)
  Sender: FDA-Public Use
  Company Number: US-AMGEN-US273409

PATIENT
  Sex: Male

DRUGS (11)
  1. PANITUMUMAB [Suspect]
     Indication: SQUAMOUS CELL CARCINOMA
     Route: 042
     Dates: start: 20080327
  2. DOCETAXEL [Suspect]
     Route: 065
     Dates: start: 20080327
  3. CISPLATIN [Suspect]
     Route: 065
     Dates: start: 20080327
  4. DYNACIRC [Concomitant]
     Dates: start: 20020101
  5. HYDROCODONE BITARTRATE [Concomitant]
     Dates: start: 20071126
  6. PROTONIX [Concomitant]
     Dates: start: 20071126
  7. FLOVENT [Concomitant]
     Route: 055
     Dates: start: 19850101
  8. ALBUTEROL [Concomitant]
     Route: 055
     Dates: start: 19850101
  9. MORPHINE SULFATE [Concomitant]
     Dates: start: 20080221
  10. CIPROFLOXACIN [Concomitant]
     Dates: start: 20080331
  11. NEURONTIN [Concomitant]

REACTIONS (1)
  - PANCYTOPENIA [None]
